FAERS Safety Report 13246843 (Version 1)
Quarter: 2017Q1

REPORT INFORMATION
  Report Type: Spontaneous
  Country: US (occurrence: US)
  Receive Date: 20170217
  Receipt Date: 20170217
  Transmission Date: 20170428
  Serious: Yes (Hospitalization)
  Sender: FDA-Public Use
  Company Number: US-AMGEN-USASP2017023857

PATIENT
  Age: 73 Year
  Sex: Female

DRUGS (8)
  1. FOLIC ACID. [Concomitant]
     Active Substance: FOLIC ACID
     Dosage: 1 MG, QD
  2. KADCYLA [Concomitant]
     Active Substance: ADO-TRASTUZUMAB EMTANSINE
     Dosage: UNK UNK, Q3WK
     Dates: start: 201510
  3. SENOKOT [Concomitant]
     Active Substance: SENNOSIDES
     Dosage: UNK UNK, AS NECESSARY
  4. LETROZOLE. [Concomitant]
     Active Substance: LETROZOLE
     Dosage: 2.5 MG, UNK
  5. EFFEXOR [Concomitant]
     Active Substance: VENLAFAXINE HYDROCHLORIDE
     Dosage: 37.5 MG, UNK
  6. SYNTHROID [Concomitant]
     Active Substance: LEVOTHYROXINE SODIUM
     Dosage: 100 MCG AND 112 MCG ALTERNATE DAYS
  7. CLARITIN [Suspect]
     Active Substance: LORATADINE
     Indication: BONE PAIN
     Dosage: UNK
     Route: 065
  8. NEULASTA [Suspect]
     Active Substance: PEGFILGRASTIM
     Indication: WHITE BLOOD CELL COUNT ABNORMAL
     Dosage: UNK, Q3WK (HALF OF THE DOSE, EVERY 3 WEEKS)
     Route: 065
     Dates: start: 201609

REACTIONS (10)
  - Eye swelling [Unknown]
  - Dehydration [Unknown]
  - Bone pain [Unknown]
  - Eyelid margin crusting [Recovering/Resolving]
  - Eye discharge [Unknown]
  - Sinusitis [Unknown]
  - Swelling face [Unknown]
  - Heart rate increased [Unknown]
  - Headache [Unknown]
  - Anxiety [Unknown]

NARRATIVE: CASE EVENT DATE: 2016
